FAERS Safety Report 17285614 (Version 1)
Quarter: 2020Q1

REPORT INFORMATION
  Report Type: Spontaneous
  Country: US (occurrence: US)
  Receive Date: 20200117
  Receipt Date: 20200117
  Transmission Date: 20200409
  Serious: Yes (Hospitalization, Disabling)
  Sender: FDA-Public Use
  Company Number: US-PROCTER+GAMBLE-GS20001835

PATIENT
  Age: 33 Year
  Sex: Male

DRUGS (4)
  1. PEPTO-BISMOL [Suspect]
     Active Substance: BISMUTH SUBSALICYLATE
     Indication: GASTRIC DISORDER
     Dosage: SEVERAL TIMES A YEAR AS DIRECTED
     Route: 048
  2. PEPTO-BISMOL [Suspect]
     Active Substance: BISMUTH SUBSALICYLATE
     Indication: DIARRHOEA
  3. PEPTO-BISMOL [Suspect]
     Active Substance: BISMUTH SUBSALICYLATE
     Indication: ABDOMINAL DISCOMFORT
  4. MAGNETIC RESONANCE IMAGING CONTRAST MEDIA [Suspect]
     Active Substance: UNSPECIFIED INGREDIENT

REACTIONS (17)
  - Blood pressure increased [Not Recovered/Not Resolved]
  - Paraesthesia [Unknown]
  - Dizziness [Recovering/Resolving]
  - Blood heavy metal increased [Recovered/Resolved]
  - Mineral deficiency [Unknown]
  - Alopecia [Not Recovered/Not Resolved]
  - Skin disorder [Not Recovered/Not Resolved]
  - Abdominal discomfort [Unknown]
  - Speech disorder [Unknown]
  - Metal poisoning [Unknown]
  - Tinnitus [Not Recovered/Not Resolved]
  - Weight decreased [Not Recovered/Not Resolved]
  - Diaphragmalgia [Not Recovered/Not Resolved]
  - Gastric polyps [Recovered/Resolved]
  - Anxiety [Not Recovered/Not Resolved]
  - Motion sickness [Not Recovered/Not Resolved]
  - Gait disturbance [Unknown]
